FAERS Safety Report 25631799 (Version 1)
Quarter: 2025Q3

REPORT INFORMATION
  Report Type: Spontaneous
  Country: IN (occurrence: IN)
  Receive Date: 20250801
  Receipt Date: 20250801
  Transmission Date: 20251020
  Serious: Yes (Hospitalization, Other)
  Sender: AZURITY PHARMACEUTICALS
  Company Number: IN-AZURITY PHARMACEUTICALS, INC.-AZR202507-002247

PATIENT
  Age: 74 Year
  Sex: Female

DRUGS (2)
  1. METHOTREXATE [Suspect]
     Active Substance: METHOTREXATE
     Indication: Psoriasis
     Dosage: 5 MILLIGRAM, DAILY
     Route: 065
  2. FOLIC ACID [Concomitant]
     Active Substance: FOLIC ACID
     Indication: Psoriasis
     Dosage: 5 MILLIGRAM, BIW
     Route: 065

REACTIONS (12)
  - Cardiac arrest [Unknown]
  - Pancytopenia [Unknown]
  - Acute kidney injury [Unknown]
  - Toxicity to various agents [Unknown]
  - Asthenia [Unknown]
  - Skin lesion [Unknown]
  - Pyrexia [Unknown]
  - Stomatitis [Unknown]
  - Product name confusion [Unknown]
  - Product dispensing error [Unknown]
  - Product use issue [Unknown]
  - Product use in unapproved indication [Unknown]
